FAERS Safety Report 9205915 (Version 2)
Quarter: 2014Q1

REPORT INFORMATION
  Report Type: Spontaneous
  Country: US (occurrence: US)
  Receive Date: 20130403
  Receipt Date: 20140203
  Transmission Date: 20141002
  Serious: Yes (Hospitalization, Other)
  Sender: FDA-Public Use
  Company Number: US-BAYER-2013-039405

PATIENT
  Age: 20 Year
  Sex: Female

DRUGS (11)
  1. YAZ [Suspect]
  2. YASMIN [Suspect]
  3. AVELOX [Concomitant]
     Dosage: 400 MG, UNK
     Dates: start: 20081226
  4. FLUOXETINE [Concomitant]
     Dosage: 20 MG, UNK
     Dates: start: 20090116
  5. FLUOXETINE [Concomitant]
     Dosage: 40 MG, ONCE
     Route: 048
  6. RANITIDINE [Concomitant]
     Dosage: 150 MG, UNK
     Dates: start: 20090116
  7. NEXIUM [Concomitant]
     Dosage: 40 MG, ONCE
     Route: 048
     Dates: start: 20090206
  8. SULFAMETHOXAZOLE [Concomitant]
     Dosage: UNK
     Dates: start: 20090206
  9. SUCRALFATE [Concomitant]
     Dosage: 1 G, QID DAILY
     Route: 048
     Dates: start: 20090224
  10. EPINEPHRINE HYDROCHLORIDE [Concomitant]
     Indication: HYPERSENSITIVITY
     Dosage: 0.3 MG, UNK
     Route: 030
  11. OXYCODONE/APAP [Concomitant]
     Indication: PAIN

REACTIONS (5)
  - Cholecystectomy [None]
  - Biliary dyskinesia [None]
  - Cholecystitis chronic [None]
  - Injury [None]
  - Pain [None]
